FAERS Safety Report 9925975 (Version 2)
Quarter: 2014Q1

REPORT INFORMATION
  Report Type: Spontaneous
  Country: US (occurrence: US)
  Receive Date: 20140226
  Receipt Date: 20140226
  Transmission Date: 20141002
  Serious: No
  Sender: FDA-Public Use
  Company Number: US-BRACCO-009817

PATIENT
  Sex: Female
  Weight: 72 kg

DRUGS (2)
  1. ISOVUE 370 [Suspect]
     Indication: COMPUTERISED TOMOGRAM
     Route: 042
     Dates: start: 20130711, end: 20130711
  2. VERAPAMIL [Concomitant]

REACTIONS (1)
  - Drug ineffective [Unknown]
